FAERS Safety Report 11316188 (Version 1)
Quarter: 2015Q3

REPORT INFORMATION
  Report Type: Spontaneous
  Country: US (occurrence: US)
  Receive Date: 20150728
  Receipt Date: 20150728
  Transmission Date: 20151125
  Serious: No
  Sender: FDA-Public Use
  Company Number: US-BIOGENIDEC-2015BI105063

PATIENT
  Age: 41 Year
  Sex: Female

DRUGS (1)
  1. TECFIDERA [Suspect]
     Active Substance: DIMETHYL FUMARATE
     Indication: MULTIPLE SCLEROSIS
     Route: 048

REACTIONS (5)
  - Pain [Not Recovered/Not Resolved]
  - Headache [Unknown]
  - Nausea [Recovered/Resolved]
  - Fatigue [Not Recovered/Not Resolved]
  - Swelling [Not Recovered/Not Resolved]

NARRATIVE: CASE EVENT DATE: 20130903
